FAERS Safety Report 24155169 (Version 2)
Quarter: 2024Q3

REPORT INFORMATION
  Report Type: Spontaneous
  Country: JP (occurrence: JP)
  Receive Date: 20240731
  Receipt Date: 20240909
  Transmission Date: 20241017
  Serious: Yes (Other)
  Sender: CHEPLAPHARM
  Company Number: JP-CHEPLA-2024009530

PATIENT
  Sex: Male

DRUGS (1)
  1. VALGANCICLOVIR [Suspect]
     Active Substance: VALGANCICLOVIR
     Dosage: DRY SYRUP
     Route: 048

REACTIONS (3)
  - Haemoglobin decreased [Unknown]
  - Gastrointestinal haemorrhage [Unknown]
  - Faeces discoloured [Unknown]
